FAERS Safety Report 6517017-3 (Version None)
Quarter: 2009Q4

REPORT INFORMATION
  Report Type: 
  Country: None (occurrence: None)
  Receive Date: 20091223
  Receipt Date: 20091216
  Transmission Date: 20100525
  Serious: Yes (Hospitalization)
  Sender: FDA-Public Use
  Company Number: GXKR2009CH13562

PATIENT
  Sex: Female

DRUGS (6)
  1. RIFAMPIN AND ISONIAZID [Suspect]
     Indication: TUBERCULOSIS
     Dosage: UNK
     Route: 048
     Dates: start: 20090601, end: 20091001
  2. MST [Interacting]
     Indication: PAIN
     Dosage: 40 MG, TID
     Route: 048
  3. OXAZEPAM [Interacting]
     Indication: PERSONALITY DISORDER
     Dosage: 15 MG, BID
     Route: 048
  4. CLONAZEPAM [Interacting]
     Indication: PERSONALITY DISORDER
     Dosage: 3 MG, UNK
     Route: 048
  5. PYRAZINAMIDE [Suspect]
  6. ETHAMBUTOL HYDROCHLORIDE [Suspect]

REACTIONS (4)
  - DRUG INEFFECTIVE [None]
  - DRUG INTERACTION [None]
  - INSOMNIA [None]
  - MUSCULOSKELETAL PAIN [None]
